APPROVED DRUG PRODUCT: CHLORPROPAMIDE
Active Ingredient: CHLORPROPAMIDE
Strength: 100MG
Dosage Form/Route: TABLET;ORAL
Application: A088175 | Product #001
Applicant: PAR PHARMACEUTICAL INC
Approved: Feb 27, 1984 | RLD: No | RS: No | Type: DISCN